FAERS Safety Report 5567290-3 (Version None)
Quarter: 2007Q4

REPORT INFORMATION
  Report Type: 
  Country: None (occurrence: None)
  Receive Date: 20071219
  Receipt Date: 20070515
  Transmission Date: 20080405
  Serious: Yes (Other)
  Sender: FDA-Public Use
  Company Number: US-ABBOTT-07P-163-0364932-00

PATIENT
  Sex: Male
  Weight: 83.99 kg

DRUGS (4)
  1. DILAUDID [Suspect]
     Indication: SPINAL FUSION SURGERY
     Dosage: MAX DOSE OF 3-4 MG EVERY 4 HR
     Route: 042
     Dates: start: 20070124, end: 20070124
  2. DILAUDID [Suspect]
     Indication: POSTOPERATIVE ANALGESIA
  3. LOVASTATIN [Concomitant]
     Indication: BLOOD CHOLESTEROL INCREASED
  4. DIGITALIS TAB [Concomitant]
     Indication: ATRIAL FIBRILLATION

REACTIONS (2)
  - APNOEA [None]
  - BLOOD PRESSURE DECREASED [None]
